FAERS Safety Report 5866120-X (Version None)
Quarter: 2008Q3

REPORT INFORMATION
  Report Type: 
  Country: None (occurrence: None)
  Receive Date: 20080829
  Receipt Date: 20080819
  Transmission Date: 20090109
  Serious: Yes (Other)
  Sender: FDA-Public Use
  Company Number: EG-GENENTECH-267024

PATIENT
  Age: 19 Year
  Sex: Female

DRUGS (1)
  1. MABTHERA [Suspect]
     Indication: NON-HODGKIN'S LYMPHOMA
     Dosage: 500 MG, UNK
     Route: 065
     Dates: start: 20080618

REACTIONS (1)
  - SUICIDE ATTEMPT [None]
